FAERS Safety Report 5369686-1 (Version None)
Quarter: 2007Q2

REPORT INFORMATION
  Report Type: 
  Country: None (occurrence: None)
  Receive Date: 20070625
  Receipt Date: 20070614
  Transmission Date: 20071010
  Serious: Yes (Hospitalization, Other)
  Sender: FDA-Public Use
  Company Number: US-BAUSCH-2007BL001986

PATIENT
  Age: 72 Year
  Sex: Female

DRUGS (1)
  1. SULFACETAMIDE SODIUM [Suspect]
     Indication: EYE INFECTION
     Route: 047
     Dates: start: 20070604, end: 20070606

REACTIONS (2)
  - BLOOD PRESSURE INCREASED [None]
  - CELLULITIS ORBITAL [None]
